FAERS Safety Report 6033361-0 (Version None)
Quarter: 2009Q1

REPORT INFORMATION
  Report Type: 
  Country: None (occurrence: None)
  Receive Date: 20090109
  Receipt Date: 20081230
  Transmission Date: 20090719
  Serious: Yes (Other)
  Sender: FDA-Public Use
  Company Number: US-ELI_LILLY_AND_COMPANY-US200812001098

PATIENT
  Sex: Female
  Weight: 45.805 kg

DRUGS (10)
  1. FORTEO [Suspect]
     Indication: OSTEOPOROSIS
     Dosage: 20 UG, DAILY (1/D)
     Dates: start: 20070301, end: 20070801
  2. FORTEO [Suspect]
     Dates: start: 20080101
  3. TAMBOCOR [Concomitant]
     Dosage: 50 D/F, 2/D
     Dates: start: 20010101
  4. PLAVIX [Concomitant]
     Dosage: 75 D/F, DAILY (1/D)
     Dates: start: 20050101
  5. PREDNISONE TAB [Concomitant]
     Dosage: 2.5 D/F, DAILY (1/D)
     Dates: start: 20080808, end: 20081222
  6. NORVASC [Concomitant]
     Dosage: 2.5 D/F, DAILY (1/D)
     Dates: start: 20071201
  7. ASPIRIN [Concomitant]
     Dosage: 81 D/F, DAILY (1/D)
     Dates: start: 20050101
  8. NEXIUM [Concomitant]
     Dosage: 40 D/F, DAILY (1/D)
     Dates: start: 20080922, end: 20081002
  9. SLOW-FE /00023503/ [Concomitant]
  10. VITAMIN D [Concomitant]

REACTIONS (6)
  - ASTHENIA [None]
  - BLOOD CREATINE PHOSPHOKINASE INCREASED [None]
  - FATIGUE [None]
  - MALAISE [None]
  - MEMORY IMPAIRMENT [None]
  - MYALGIA [None]
